FAERS Safety Report 7506508-4 (Version None)
Quarter: 2011Q2

REPORT INFORMATION
  Report Type: 
  Country: None (occurrence: None)
  Receive Date: 20110519
  Receipt Date: 20110516
  Transmission Date: 20111010
  Serious: No
  Sender: FDA-Public Use
  Company Number: 2011-00166

PATIENT
  Age: 81 Year
  Sex: Female
  Weight: 67.586 kg

DRUGS (3)
  1. ZICAM COLD REMEDY PLUS RAPIDMELTS [Suspect]
     Dosage: 1 TABLET
     Dates: start: 20110406, end: 20110406
  2. INDAPAMIDE [Concomitant]
  3. ZOCOR [Concomitant]

REACTIONS (1)
  - AGEUSIA [None]
